FAERS Safety Report 5768331-0 (Version None)
Quarter: 2008Q2

REPORT INFORMATION
  Report Type: 
  Country: None (occurrence: None)
  Receive Date: 20080612
  Receipt Date: 20080422
  Transmission Date: 20081010
  Serious: No
  Sender: FDA-Public Use
  Company Number: US-ABBOTT-08P-163-0438375-00

PATIENT
  Sex: Female
  Weight: 56.296 kg

DRUGS (9)
  1. HUMIRA [Suspect]
     Indication: CROHN'S DISEASE
     Route: 058
     Dates: start: 20080126, end: 20080126
  2. HUMIRA [Suspect]
     Route: 058
  3. HUMIRA [Suspect]
     Route: 058
  4. HUMIRA [Suspect]
  5. HUMIRA [Suspect]
  6. MESALAMINE [Concomitant]
     Indication: CROHN'S DISEASE
     Route: 048
  7. LORATADINE [Concomitant]
     Indication: SEASONAL ALLERGY
     Route: 048
  8. IBUROFEN [Concomitant]
     Indication: CROHN'S DISEASE
     Dosage: AS NEEDED
  9. IBUROFEN [Concomitant]
     Indication: PAIN

REACTIONS (1)
  - ACCIDENTAL EXPOSURE [None]
